FAERS Safety Report 13663033 (Version 2)
Quarter: 2017Q3

REPORT INFORMATION
  Report Type: Spontaneous
  Country: US (occurrence: US)
  Receive Date: 20170619
  Receipt Date: 20170813
  Transmission Date: 20171127
  Serious: No
  Sender: FDA-Public Use
  Company Number: US-009507513-1706USA007203

PATIENT
  Age: 23 Year
  Sex: Female
  Weight: 83.9 kg

DRUGS (1)
  1. NEXPLANON [Suspect]
     Active Substance: ETONOGESTREL
     Indication: CONTRACEPTION
     Dosage: 1 IMPLANT, UNK
     Route: 030
     Dates: start: 20140615, end: 20170614

REACTIONS (6)
  - Device breakage [Recovered/Resolved]
  - Device difficult to use [Recovered/Resolved]
  - Product quality issue [Unknown]
  - Device deployment issue [Recovered/Resolved]
  - No adverse event [Unknown]
  - Complication of device removal [Recovered/Resolved]

NARRATIVE: CASE EVENT DATE: 20170614
